FAERS Safety Report 6268867-2 (Version None)
Quarter: 2009Q3

REPORT INFORMATION
  Report Type: 
  Country: None (occurrence: None)
  Receive Date: 20090715
  Receipt Date: 20090703
  Transmission Date: 20100115
  Serious: Yes (Other)
  Sender: FDA-Public Use
  Company Number: PHHY2009RU27157

PATIENT
  Sex: Female

DRUGS (4)
  1. EXJADE [Suspect]
     Indication: APLASTIC ANAEMIA
     Dosage: 1000 MG/DAY
  2. EXJADE [Suspect]
     Dosage: 2000 MG DAILY
     Dates: start: 20090630
  3. EXJADE [Suspect]
     Dosage: 1000 MG/DAY
  4. BLOOD TRANSFUSION [Concomitant]

REACTIONS (7)
  - ABDOMINAL PAIN UPPER [None]
  - ABNORMAL FAECES [None]
  - CHROMATURIA [None]
  - GENERALISED OEDEMA [None]
  - INCORRECT DOSE ADMINISTERED [None]
  - LARYNGEAL OEDEMA [None]
  - NAUSEA [None]
